FAERS Safety Report 7929834-3 (Version None)
Quarter: 2011Q4

REPORT INFORMATION
  Report Type: 
  Country: None (occurrence: None)
  Receive Date: 20111121
  Receipt Date: 20111115
  Transmission Date: 20120403
  Serious: Yes (Other)
  Sender: FDA-Public Use
  Company Number: US-PFIZER INC-2011280032

PATIENT
  Sex: Female
  Weight: 61.2 kg

DRUGS (4)
  1. CELEXA [Concomitant]
     Dosage: UNK
  2. CHANTIX [Suspect]
     Indication: SMOKING CESSATION THERAPY
     Dosage: 0.5 MG, 1X/DAY
     Route: 048
     Dates: start: 20110401, end: 20110401
  3. CHANTIX [Suspect]
     Dosage: UNK
     Route: 048
     Dates: start: 20110401, end: 20110401
  4. XANAX [Concomitant]
     Dosage: UNK

REACTIONS (1)
  - SUICIDAL IDEATION [None]
